FAERS Safety Report 25964410 (Version 2)
Quarter: 2025Q4

REPORT INFORMATION
  Report Type: Spontaneous
  Country: CA (occurrence: CA)
  Receive Date: 20251027
  Receipt Date: 20251211
  Transmission Date: 20260118
  Serious: Yes (Other)
  Sender: SANOFI AVENTIS
  Company Number: CA-SANOFI-02695211

PATIENT
  Age: 75 Year
  Sex: Female

DRUGS (1)
  1. LANTUS [Suspect]
     Active Substance: INSULIN GLARGINE
     Indication: Diabetes mellitus
     Dosage: UNK

REACTIONS (2)
  - Cerebrovascular accident [Unknown]
  - Memory impairment [Unknown]

NARRATIVE: CASE EVENT DATE: 20191201
